FAERS Safety Report 7819964-9 (Version None)
Quarter: 2011Q4

REPORT INFORMATION
  Report Type: 
  Country: None (occurrence: None)
  Receive Date: 20111018
  Receipt Date: 20110218
  Transmission Date: 20120403
  Serious: No
  Sender: FDA-Public Use
  Company Number: US-ASTRAZENECA-2011SE09594

PATIENT
  Sex: Female

DRUGS (1)
  1. SYMBICORT [Suspect]
     Dosage: 80/4.5 MCG 2 PUFFS BID
     Route: 055
     Dates: start: 20110217

REACTIONS (3)
  - RESPIRATORY DISORDER [None]
  - DYSPNOEA [None]
  - DRUG DOSE OMISSION [None]
